FAERS Safety Report 7947270-0 (Version None)
Quarter: 2011Q4

REPORT INFORMATION
  Report Type: 
  Country: None (occurrence: None)
  Receive Date: 20111129
  Receipt Date: 20111112
  Transmission Date: 20120403
  Serious: Yes (Hospitalization)
  Sender: FDA-Public Use
  Company Number: DK-ASTRAZENECA-2011SE71768

PATIENT
  Age: 25514 Day
  Sex: Male
  Weight: 62 kg

DRUGS (16)
  1. DIGOXIN [Concomitant]
     Indication: ARRHYTHMIA
  2. ESCITALOPRAM [Concomitant]
     Indication: DEPRESSION
     Route: 048
  3. WARFARIN SODIUM [Concomitant]
     Indication: ANTICOAGULANT THERAPY
  4. ASCORBINSYRE [Concomitant]
     Indication: SUPPLEMENTATION THERAPY
  5. ACTILAX [Concomitant]
     Indication: CONSTIPATION
     Dosage: 7.5 MG/ML /DAILY
     Route: 048
  6. IMOCLONE [Concomitant]
     Indication: INSOMNIA
     Route: 048
  7. CARVEDILOL [Concomitant]
     Indication: CARDIAC DISORDER
     Route: 048
  8. CLONAZEPAM [Concomitant]
     Route: 048
  9. ETALPHA [Concomitant]
     Indication: VITAMIN D DEFICIENCY
     Route: 048
  10. MOVIPREP [Concomitant]
     Indication: CONSTIPATION
     Dosage: DOSIS: 1 X 1
     Route: 048
  11. FENYTOIN ^DAK^ [Concomitant]
     Indication: STATUS EPILEPTICUS
     Route: 048
  12. SEROQUEL [Suspect]
     Indication: DEPRESSION
     Route: 048
  13. RENAGEL [Concomitant]
     Indication: HYPERPHOSPHATAEMIA
     Route: 048
  14. COZAAR [Concomitant]
     Indication: HYPERTENSION
     Route: 048
  15. FOLININSYRE [Concomitant]
     Indication: DIALYSIS
     Route: 048
  16. ACETAMINOPHEN [Concomitant]
     Indication: PAIN

REACTIONS (2)
  - DEPRESSED LEVEL OF CONSCIOUSNESS [None]
  - CONFUSIONAL STATE [None]
